FAERS Safety Report 16157632 (Version 1)
Quarter: 2019Q2

REPORT INFORMATION
  Report Type: Spontaneous
  Country: FR (occurrence: FR)
  Receive Date: 20190404
  Receipt Date: 20190404
  Transmission Date: 20190711
  Serious: Yes (Congenital Anomaly, Other)
  Sender: FDA-Public Use
  Company Number: FR-TEVA-2019-FR-1032608

PATIENT
  Age: 37 Year
  Sex: Male

DRUGS (10)
  1. BLEOMYCINE [Suspect]
     Active Substance: BLEOMYCIN SULFATE
     Indication: HODGKIN^S DISEASE
     Route: 042
     Dates: start: 20160705
  2. CYTARABINE. [Suspect]
     Active Substance: CYTARABINE
     Indication: HODGKIN^S DISEASE
     Route: 042
     Dates: start: 20180202
  3. DOXORUBICIN [Suspect]
     Active Substance: DOXORUBICIN
     Indication: HODGKIN^S DISEASE
     Route: 042
     Dates: start: 20160705
  4. DEXAMETHASONE. [Suspect]
     Active Substance: DEXAMETHASONE
     Indication: HODGKIN^S DISEASE
     Route: 042
     Dates: start: 20180202
  5. TOPALGIC [TRAMADOL HYDROCHLORIDE] [Concomitant]
     Active Substance: TRAMADOL HYDROCHLORIDE
  6. ZELITREX [Concomitant]
     Active Substance: VALACYCLOVIR HYDROCHLORIDE
  7. DACARBAZINE. [Suspect]
     Active Substance: DACARBAZINE
     Indication: HODGKIN^S DISEASE
     Route: 042
     Dates: start: 20160705
  8. OXALIPLATINE [Suspect]
     Active Substance: OXALIPLATIN
     Indication: HODGKIN^S DISEASE
     Route: 042
     Dates: start: 20180202
  9. VINBLASTINE (SULFATE DE) [Suspect]
     Active Substance: VINBLASTINE SULFATE
     Indication: HODGKIN^S DISEASE
     Route: 042
     Dates: start: 20160705
  10. ZINNAT [Concomitant]
     Active Substance: CEFUROXIME AXETIL

REACTIONS (1)
  - Ichthyosis [Recovering/Resolving]

NARRATIVE: CASE EVENT DATE: 201804
